FAERS Safety Report 8326581-3 (Version None)
Quarter: 2012Q2

REPORT INFORMATION
  Report Type: 
  Country: None (occurrence: None)
  Receive Date: 20120501
  Receipt Date: 20090813
  Transmission Date: 20120825
  Serious: No
  Sender: FDA-Public Use
  Company Number: US-TEVA-2009009623

PATIENT
  Sex: Male
  Weight: 59.02 kg

DRUGS (3)
  1. LEXAPRO [Concomitant]
     Dates: start: 20090701
  2. NUVIGIL [Suspect]
     Indication: ATTENTION DEFICIT/HYPERACTIVITY DISORDER
     Route: 048
     Dates: start: 20090809
  3. NUVIGIL [Suspect]
     Route: 048
     Dates: start: 20090812

REACTIONS (5)
  - LACERATION [None]
  - DEPRESSION [None]
  - ACCIDENT [None]
  - PLEURITIC PAIN [None]
  - DRUG PRESCRIBING ERROR [None]
